FAERS Safety Report 6064792-0 (Version None)
Quarter: 2009Q1

REPORT INFORMATION
  Report Type: 
  Country: None (occurrence: None)
  Receive Date: 20090204
  Receipt Date: 20090203
  Transmission Date: 20090719
  Serious: Yes (Hospitalization)
  Sender: FDA-Public Use
  Company Number: RU-BRISTOL-MYERS SQUIBB COMPANY-14487094

PATIENT
  Age: 43 Year
  Sex: Male

DRUGS (2)
  1. CARBOPLATIN [Suspect]
     Indication: NON-SMALL CELL LUNG CANCER
     Dosage: 1DOSAGE FORM=AUC 6MG/M2;FIRST DOSE ON 31DEC08
     Dates: start: 20090121, end: 20090121
  2. TAXOL [Suspect]
     Indication: NON-SMALL CELL LUNG CANCER
     Dosage: FIRST DOSE ON 31DEC08
     Dates: start: 20090121, end: 20090121

REACTIONS (1)
  - SUPRAVENTRICULAR TACHYCARDIA [None]
